FAERS Safety Report 22134556 (Version 1)
Quarter: 2023Q1

REPORT INFORMATION
  Report Type: Spontaneous
  Country: US (occurrence: US)
  Receive Date: 20230324
  Receipt Date: 20230324
  Transmission Date: 20230418
  Serious: No
  Sender: FDA-Public Use
  Company Number: US-BEH-2023156634

PATIENT
  Sex: Female

DRUGS (23)
  1. HIZENTRA [Suspect]
     Active Substance: HUMAN IMMUNOGLOBULIN G
     Indication: Immunodeficiency common variable
     Dosage: 17 GRAM, QW
     Route: 058
  2. ALBUTEROL SULFATE [Concomitant]
     Active Substance: ALBUTEROL SULFATE
  3. ATORVASTATIN [Concomitant]
     Active Substance: ATORVASTATIN
  4. AZELASTINE HYDROCHLORIDE [Concomitant]
     Active Substance: AZELASTINE HYDROCHLORIDE
  5. BACLOFEN [Concomitant]
     Active Substance: BACLOFEN
  6. CELECOXIB [Concomitant]
     Active Substance: CELECOXIB
  7. DIVALPROEX SODIUM [Concomitant]
     Active Substance: DIVALPROEX SODIUM
  8. FLOVENT HFA [Concomitant]
     Active Substance: FLUTICASONE PROPIONATE
  9. FLUTICASONE [Concomitant]
     Active Substance: FLUTICASONE
  10. FOLIC ACID [Concomitant]
     Active Substance: FOLIC ACID
  11. GABAPENTIN [Concomitant]
     Active Substance: GABAPENTIN
  12. LEVOTHYROXINE [Concomitant]
     Active Substance: LEVOTHYROXINE
  13. LITHIUM CARBONATE [Concomitant]
     Active Substance: LITHIUM CARBONATE
  14. METHOTREXATE SODIUM [Concomitant]
     Active Substance: METHOTREXATE SODIUM
  15. MONTELUKAST [Concomitant]
     Active Substance: MONTELUKAST SODIUM
  16. OMEPRAZOLE [Concomitant]
     Active Substance: OMEPRAZOLE
  17. PRIMIDONE [Concomitant]
     Active Substance: PRIMIDONE
  18. PROPRANOLOL [Concomitant]
     Active Substance: PROPRANOLOL HYDROCHLORIDE
  19. SERTRALINE HYDROCHLORIDE [Concomitant]
     Active Substance: SERTRALINE HYDROCHLORIDE
  20. UBRELVY [Concomitant]
     Active Substance: UBROGEPANT
  21. VALACYCLOVIR [Concomitant]
     Active Substance: VALACYCLOVIR HYDROCHLORIDE
  22. VITAMIN B12 [Concomitant]
     Active Substance: CYANOCOBALAMIN
  23. VITAMIN D3 [Concomitant]
     Active Substance: CHOLECALCIFEROL

REACTIONS (2)
  - Pruritus [Recovered/Resolved]
  - Pyrexia [Recovered/Resolved]
